FAERS Safety Report 18312343 (Version 1)
Quarter: 2020Q3

REPORT INFORMATION
  Report Type: Spontaneous
  Country: AU (occurrence: AU)
  Receive Date: 20200925
  Receipt Date: 20200925
  Transmission Date: 20201103
  Serious: Yes (Other)
  Sender: FDA-Public Use
  Company Number: AU-GUERBET-AU-20200037

PATIENT
  Age: 4 Year
  Sex: Male

DRUGS (1)
  1. DOTAREM [Suspect]
     Active Substance: GADOTERATE MEGLUMINE
     Indication: PRODUCT USED FOR UNKNOWN INDICATION
     Route: 065

REACTIONS (19)
  - Burning sensation [Unknown]
  - Vomiting [Unknown]
  - Palpitations [Unknown]
  - Erythema [Unknown]
  - Arthralgia [Unknown]
  - Dysgeusia [Unknown]
  - Dyspnoea [Unknown]
  - Dysphonia [Unknown]
  - Tinnitus [Unknown]
  - Chest pain [Unknown]
  - Nausea [Unknown]
  - Skin exfoliation [Unknown]
  - Pruritus [Unknown]
  - Muscle twitching [Unknown]
  - Diarrhoea [Unknown]
  - Myalgia [Unknown]
  - Dry eye [Unknown]
  - Headache [Unknown]
  - Pallor [Unknown]
